FAERS Safety Report 12480118 (Version 1)
Quarter: 2016Q2

REPORT INFORMATION
  Report Type: Spontaneous
  Country: US (occurrence: None)
  Receive Date: 20160617
  Receipt Date: 20160617
  Transmission Date: 20160815
  Serious: Yes (Hospitalization)
  Sender: FDA-Public Use
  Company Number: None

PATIENT
  Age: 91 Year
  Weight: 41.1 kg

DRUGS (21)
  1. CIPRO [Concomitant]
     Active Substance: CIPROFLOXACIN HYDROCHLORIDE
  2. CLOPIDOGREL [Concomitant]
     Active Substance: CLOPIDOGREL BISULFATE
  3. DULOXETINE. [Concomitant]
     Active Substance: DULOXETINE
  4. LISINOPRIL-HCTZ [Concomitant]
     Active Substance: HYDROCHLOROTHIAZIDE\LISINOPRIL
  5. ELIQUIS [Suspect]
     Active Substance: APIXABAN
     Indication: ATRIAL FIBRILLATION
     Route: 048
  6. FERROUS GLUCONATE [Concomitant]
     Active Substance: FERROUS GLUCONATE
  7. POTASSIUM [Concomitant]
     Active Substance: POTASSIUM
  8. BUMETANIDE. [Concomitant]
     Active Substance: BUMETANIDE
  9. CALCIUM CARBONATE/VITAMIN D3 [Concomitant]
     Active Substance: CALCIUM CARBONATE\CHOLECALCIFEROL
  10. CALCIUM POLYCARBOPHIL. [Concomitant]
     Active Substance: CALCIUM POLYCARBOPHIL
  11. COREG [Concomitant]
     Active Substance: CARVEDILOL
  12. ACETAMINOPHEN\HYDROCODONE BITARTRATE [Concomitant]
     Active Substance: ACETAMINOPHEN\HYDROCODONE BITARTRATE
  13. VITAMIN C [Concomitant]
     Active Substance: ASCORBIC ACID
  14. ASPIRIN. [Concomitant]
     Active Substance: ASPIRIN
  15. FUROSEMIDE. [Concomitant]
     Active Substance: FUROSEMIDE
  16. MVI [Concomitant]
     Active Substance: VITAMINS
  17. DOCUSATE SODIUM. [Concomitant]
     Active Substance: DOCUSATE SODIUM
  18. LEVOTHYROXINE. [Concomitant]
     Active Substance: LEVOTHYROXINE
  19. VITAMIN E [Concomitant]
     Active Substance: .ALPHA.-TOCOPHEROL
  20. MECLIZINE [Concomitant]
     Active Substance: MECLIZINE HYDROCHLORIDE
  21. RISEDRONATE [Concomitant]
     Active Substance: RISEDRONATE SODIUM

REACTIONS (4)
  - Confusional state [None]
  - Fall [None]
  - Cerebral haemorrhage [None]
  - Memory impairment [None]

NARRATIVE: CASE EVENT DATE: 20160616
